FAERS Safety Report 6187581-5 (Version None)
Quarter: 2009Q2

REPORT INFORMATION
  Report Type: 
  Country: None (occurrence: None)
  Receive Date: 20090508
  Receipt Date: 20090427
  Transmission Date: 20091009
  Serious: Yes (Hospitalization)
  Sender: FDA-Public Use
  Company Number: 2007S1013808

PATIENT
  Age: 28 Year
  Sex: Male
  Weight: 55 kg

DRUGS (12)
  1. METHOTREXATE [Suspect]
     Indication: RHEUMATOID ARTHRITIS
     Dosage: 15 MG; WEEKLY; ORAL
     Route: 048
     Dates: start: 20070926, end: 20071121
  2. HUMIRA [Suspect]
     Indication: RHEUMATOID ARTHRITIS
     Dosage: ; SUBCUTANEOUS
     Route: 058
     Dates: start: 20070925, end: 20071106
  3. DICLOFENAC [Concomitant]
  4. ACETAMINOPHEN [Concomitant]
  5. PREDNISONE [Concomitant]
  6. FOLIC ACID [Concomitant]
  7. PREDNISONE [Concomitant]
  8. FOLIC ACID [Concomitant]
  9. ACETAMINOPHEN [Concomitant]
  10. INDOMETHACIN [Concomitant]
  11. OMEPRAZOLE [Concomitant]
  12. REMICADE [Concomitant]

REACTIONS (8)
  - CONDITION AGGRAVATED [None]
  - DIARRHOEA [None]
  - DRUG INTOLERANCE [None]
  - DUODENITIS [None]
  - HYPERHIDROSIS [None]
  - NAUSEA [None]
  - RHEUMATOID ARTHRITIS [None]
  - WEIGHT DECREASED [None]
